FAERS Safety Report 12094027 (Version 3)
Quarter: 2016Q2

REPORT INFORMATION
  Report Type: Spontaneous
  Country: US (occurrence: US)
  Receive Date: 20160219
  Receipt Date: 20160624
  Transmission Date: 20160815
  Serious: Yes (Other)
  Sender: FDA-Public Use
  Company Number: US-ASTRAZENECA-2016SE15891

PATIENT
  Age: 25579 Day
  Sex: Male
  Weight: 85.7 kg

DRUGS (3)
  1. BRILINTA [Suspect]
     Active Substance: TICAGRELOR
     Indication: STENT PLACEMENT
     Route: 048
     Dates: start: 201602, end: 20160309
  2. BRILINTA [Suspect]
     Active Substance: TICAGRELOR
     Indication: ACUTE CORONARY SYNDROME
     Route: 048
     Dates: start: 201602, end: 20160309
  3. BRILINTA [Suspect]
     Active Substance: TICAGRELOR
     Indication: CORONARY ARTERY DISEASE
     Route: 048
     Dates: start: 201602, end: 20160309

REACTIONS (4)
  - Haemoptysis [Unknown]
  - Dyspnoea [Recovered/Resolved]
  - Dyspnoea [Unknown]
  - Epistaxis [Unknown]

NARRATIVE: CASE EVENT DATE: 20160211
